FAERS Safety Report 17907487 (Version 1)
Quarter: 2020Q2

REPORT INFORMATION
  Report Type: Spontaneous
  Country: GB (occurrence: GB)
  Receive Date: 20200617
  Receipt Date: 20200617
  Transmission Date: 20200714
  Serious: Yes (Other)
  Sender: FDA-Public Use
  Company Number: GB-MYLANLABS-2020M1055911

PATIENT
  Age: 30 Year
  Sex: Female
  Weight: 58 kg

DRUGS (9)
  1. FLUCLOXACILLIN [Concomitant]
     Active Substance: FLUCLOXACILLIN
     Dosage: 4 DOSAGE FORM, QD
     Dates: start: 20200424, end: 20200501
  2. METRONIDAZOLE. [Suspect]
     Active Substance: METRONIDAZOLE
     Indication: PRODUCT USED FOR UNKNOWN INDICATION
     Dosage: UNK
     Route: 067
  3. METRONIDAZOLE. [Suspect]
     Active Substance: METRONIDAZOLE
     Indication: PRODUCT USED FOR UNKNOWN INDICATION
     Dosage: 400 MILLIGRAM
     Route: 048
  4. CLOTRIMAZOLE. [Concomitant]
     Active Substance: CLOTRIMAZOLE
     Dosage: USE AS DIRRECTED
     Dates: start: 20200525
  5. BETAMETHASONE VALERATE. [Concomitant]
     Active Substance: BETAMETHASONE VALERATE
     Dosage: USE SPARINGLY UP TO TWICE A DAY FOR 10 DAYS
     Dates: start: 20200124
  6. CODEINE PHOSPHATE [Concomitant]
     Active Substance: CODEINE PHOSPHATE
     Dosage: 4 DOSAGE FORM, QD
     Dates: start: 20200424, end: 20200501
  7. FEXOFENADINE [Concomitant]
     Active Substance: FEXOFENADINE HYDROCHLORIDE
     Indication: POLYMORPHIC LIGHT ERUPTION
     Dosage: 1 DOSAGE FORM, QD
     Dates: start: 20191107
  8. HIBISCRUB                          /00133002/ [Concomitant]
     Dosage: USE AS DIRECTED
     Dates: start: 20200505
  9. NAPROXEN. [Concomitant]
     Active Substance: NAPROXEN
     Dosage: 2 DOSAGE FORM, QD
     Dates: start: 20200306, end: 20200403

REACTIONS (4)
  - Drug intolerance [Recovering/Resolving]
  - Abdominal pain upper [Unknown]
  - Diarrhoea [Unknown]
  - Vulvovaginal pruritus [Unknown]

NARRATIVE: CASE EVENT DATE: 20200524
